FAERS Safety Report 7985393-0 (Version None)
Quarter: 2011Q4

REPORT INFORMATION
  Report Type: 
  Country: None (occurrence: None)
  Receive Date: 20111216
  Receipt Date: 20111205
  Transmission Date: 20120403
  Serious: Yes (Other)
  Sender: FDA-Public Use
  Company Number: US-JNJFOC-20111109297

PATIENT
  Sex: Male
  Weight: 109.77 kg

DRUGS (2)
  1. REMICADE [Suspect]
     Indication: RHEUMATOID ARTHRITIS
     Route: 042
     Dates: start: 20111103
  2. COUMADIN [Suspect]
     Indication: PRODUCT USED FOR UNKNOWN INDICATION
     Route: 065

REACTIONS (5)
  - ANTICOAGULATION DRUG LEVEL ABOVE THERAPEUTIC [None]
  - OEDEMA PERIPHERAL [None]
  - ANTICOAGULATION DRUG LEVEL [None]
  - DRUG INTERACTION [None]
  - CELLULITIS [None]
